FAERS Safety Report 4497821-6 (Version None)
Quarter: 2004Q4

REPORT INFORMATION
  Report Type: 
  Country: None (occurrence: None)
  Receive Date: 20041110
  Receipt Date: 20040621
  Transmission Date: 20050328
  Serious: Yes (Hospitalization)
  Sender: FDA-Public Use
  Company Number: US-GLAXOSMITHKLINE-A0517584A

PATIENT
  Age: 35 Year
  Sex: Female

DRUGS (2)
  1. PAXIL [Suspect]
     Indication: DEPRESSION
     Dosage: 10MG PER DAY
     Route: 048
     Dates: start: 19990710, end: 20011201
  2. KLONOPIN [Concomitant]

REACTIONS (21)
  - ANXIETY [None]
  - BACK PAIN [None]
  - CYST [None]
  - DEPRESSION [None]
  - DIARRHOEA [None]
  - DIZZINESS [None]
  - DRUG WITHDRAWAL SYNDROME [None]
  - FATIGUE [None]
  - FEELING COLD [None]
  - HOT FLUSH [None]
  - INSOMNIA [None]
  - IRRITABILITY [None]
  - MIGRAINE [None]
  - NAUSEA [None]
  - PANIC ATTACK [None]
  - POST-TRAUMATIC STRESS DISORDER [None]
  - SEDATION [None]
  - STRESS SYMPTOMS [None]
  - SUICIDAL IDEATION [None]
  - TEARFULNESS [None]
  - VERTIGO [None]
